FAERS Safety Report 9271798 (Version 1)
Quarter: 2013Q2

REPORT INFORMATION
  Report Type: Spontaneous
  Country: US (occurrence: US)
  Receive Date: 20130506
  Receipt Date: 20130506
  Transmission Date: 20140414
  Serious: No
  Sender: FDA-Public Use
  Company Number: US-JNJFOC-20130413214

PATIENT
  Sex: Male
  Weight: 77.11 kg

DRUGS (4)
  1. DURAGESIC [Suspect]
     Indication: NEUROPATHY PERIPHERAL
     Route: 062
     Dates: start: 2013
  2. XANAX [Concomitant]
     Indication: ANXIETY
     Route: 065
  3. CYMBALTA [Concomitant]
     Indication: NEURALGIA
     Route: 065
  4. KLONOPIN [Concomitant]
     Indication: ANXIETY
     Route: 065

REACTIONS (4)
  - Drug dose omission [Not Recovered/Not Resolved]
  - Wrong technique in drug usage process [Not Recovered/Not Resolved]
  - Pain [Not Recovered/Not Resolved]
  - Product quality issue [Unknown]
